FAERS Safety Report 7527763-0 (Version None)
Quarter: 2011Q2

REPORT INFORMATION
  Report Type: 
  Country: None (occurrence: None)
  Receive Date: 20110607
  Receipt Date: 20110530
  Transmission Date: 20111010
  Serious: Yes (Hospitalization)
  Sender: FDA-Public Use
  Company Number: FR-AMGEN-FRASP2011027758

PATIENT
  Sex: Female

DRUGS (3)
  1. CARBOPLATIN [Concomitant]
  2. ARANESP [Suspect]
     Indication: PRODUCT USED FOR UNKNOWN INDICATION
     Dosage: 500 A?G, UNK
  3. NEULASTA [Suspect]
     Indication: CHEMOTHERAPY

REACTIONS (1)
  - PANCYTOPENIA [None]
